FAERS Safety Report 6999985-9 (Version None)
Quarter: 2010Q3

REPORT INFORMATION
  Report Type: 
  Country: None (occurrence: None)
  Receive Date: 20100920
  Receipt Date: 20100702
  Transmission Date: 20110219
  Serious: No
  Sender: FDA-Public Use
  Company Number: US-ASTRAZENECA-2007UW27651

PATIENT
  Age: 13631 Day
  Sex: Female
  Weight: 70.3 kg

DRUGS (24)
  1. SEROQUEL [Suspect]
     Indication: ANXIETY
     Dosage: 50MG - 200MG
     Route: 048
     Dates: start: 20000601, end: 20050301
  2. SEROQUEL [Suspect]
     Indication: BIPOLAR DISORDER
     Dosage: 50MG - 200MG
     Route: 048
     Dates: start: 20000601, end: 20050301
  3. SEROQUEL [Suspect]
     Indication: DEPRESSION
     Dosage: 50MG - 200MG
     Route: 048
     Dates: start: 20000601, end: 20050301
  4. SEROQUEL [Suspect]
     Dosage: 25-50 MG
     Route: 048
     Dates: start: 20031112
  5. SEROQUEL [Suspect]
     Dosage: 25-50 MG
     Route: 048
     Dates: start: 20031112
  6. SEROQUEL [Suspect]
     Dosage: 25-50 MG
     Route: 048
     Dates: start: 20031112
  7. SEROQUEL [Suspect]
     Route: 048
     Dates: start: 20040301, end: 20050901
  8. SEROQUEL [Suspect]
     Route: 048
     Dates: start: 20040301, end: 20050901
  9. SEROQUEL [Suspect]
     Route: 048
     Dates: start: 20040301, end: 20050901
  10. PROZAC [Concomitant]
  11. KLONOPIN [Concomitant]
  12. LEXAPRO [Concomitant]
  13. TOPROL-XL [Concomitant]
  14. ATENOLOL [Concomitant]
  15. PAXIL [Concomitant]
  16. TOPAMAX [Concomitant]
  17. SYNTHROID [Concomitant]
  18. GLUCOPHAGE [Concomitant]
  19. LUNESTA [Concomitant]
  20. CYMBALTA [Concomitant]
  21. SINGULAIR [Concomitant]
  22. RISPERDAL [Concomitant]
  23. EFFEXOR [Concomitant]
  24. SONATA [Concomitant]

REACTIONS (7)
  - DIABETES MELLITUS [None]
  - DIABETIC COMPLICATION [None]
  - HYPERGLYCAEMIA [None]
  - HYPOGLYCAEMIA [None]
  - METABOLIC SYNDROME [None]
  - TYPE 2 DIABETES MELLITUS [None]
  - WEIGHT INCREASED [None]
